FAERS Safety Report 20000177 (Version 2)
Quarter: 2021Q4

REPORT INFORMATION
  Report Type: Spontaneous
  Country: US (occurrence: US)
  Receive Date: 20211027
  Receipt Date: 20211112
  Transmission Date: 20220303
  Serious: No
  Sender: FDA-Public Use
  Company Number: US-GSKCCFUS-CASE-01197118_AE-70025

PATIENT
  Sex: Female

DRUGS (1)
  1. BENLYSTA [Suspect]
     Active Substance: BELIMUMAB
     Indication: Product used for unknown indication
     Dosage: UNK

REACTIONS (4)
  - Exposure via skin contact [Unknown]
  - Wrong technique in device usage process [Unknown]
  - Product dose omission issue [Unknown]
  - Product complaint [Unknown]
